FAERS Safety Report 4363691-X (Version None)
Quarter: 2004Q2

REPORT INFORMATION
  Report Type: 
  Country: None (occurrence: None)
  Receive Date: 20040521
  Receipt Date: 20040521
  Transmission Date: 20050107
  Serious: Yes (Life-Threatening, Disabling)
  Sender: FDA-Public Use
  Company Number: None

PATIENT
  Age: 33 Year
  Sex: Female
  Weight: 86.1834 kg

DRUGS (1)
  1. CELEXA [Suspect]
     Indication: DEPRESSION
     Dosage: 40 MG DAY ORAL
     Route: 048
     Dates: start: 20000901, end: 20040520

REACTIONS (17)
  - AMNESIA [None]
  - ARTHRALGIA [None]
  - CHILLS [None]
  - CRYING [None]
  - DIFFICULTY IN WALKING [None]
  - DISSOCIATION [None]
  - DYSKINESIA [None]
  - FEELING DRUNK [None]
  - HEADACHE [None]
  - MENTAL DISORDER [None]
  - MYALGIA [None]
  - NAUSEA [None]
  - PYREXIA [None]
  - SPEECH DISORDER [None]
  - SUICIDAL IDEATION [None]
  - TREMOR [None]
  - VERTIGO [None]
